FAERS Safety Report 9983657 (Version 1)
Quarter: 2014Q1

REPORT INFORMATION
  Report Type: Spontaneous
  Country: US (occurrence: US)
  Receive Date: 20140307
  Receipt Date: 20140307
  Transmission Date: 20141002
  Serious: No
  Sender: FDA-Public Use
  Company Number: US-TEVA-415291USA

PATIENT
  Sex: Female
  Weight: 262 kg

DRUGS (7)
  1. ETODOLAC [Suspect]
     Indication: ARTHRALGIA
     Dosage: 800 MILLIGRAM DAILY;
     Dates: start: 20130526, end: 2013
  2. CELECOXIB [Suspect]
     Indication: ARTHRALGIA
     Dosage: 400 MILLIGRAM DAILY;
     Route: 048
     Dates: start: 20130612, end: 20130616
  3. CELECOXIB [Suspect]
     Indication: INFLAMMATION
  4. PREDNISONE [Suspect]
     Indication: PAIN
     Dosage: 4 DOSAGE FORMS DAILY; FOR TWO DAYS
     Dates: start: 201305, end: 2013
  5. PREDNISONE [Suspect]
     Indication: POLYMYALGIA RHEUMATICA
     Dosage: 1.5 DOSAGE FORMS DAILY; FOR TWO DAYS
  6. PREDNISONE [Suspect]
     Dosage: 2 DOSAGE FORMS DAILY; FOR 18 DAYS
  7. FLUOXETINE HYDROCHLORIDE [Suspect]
     Dates: start: 20130608, end: 2013

REACTIONS (1)
  - Dizziness [Unknown]
